FAERS Safety Report 19837073 (Version 2)
Quarter: 2021Q4

REPORT INFORMATION
  Report Type: Spontaneous
  Country: JP (occurrence: JP)
  Receive Date: 20210914
  Receipt Date: 20211217
  Transmission Date: 20220303
  Serious: Yes (Other)
  Sender: FDA-Public Use
  Company Number: JP-UCBJ-CD202108057UCBPHAPROD

PATIENT
  Sex: Female
  Weight: 41 kg

DRUGS (1)
  1. VIMPAT [Suspect]
     Active Substance: LACOSAMIDE
     Indication: Epilepsy
     Dosage: 100 MILLIGRAM, 2X/DAY (BID)
     Route: 048
     Dates: start: 201812

REACTIONS (3)
  - Abortion spontaneous [Recovered/Resolved]
  - Maternal exposure before pregnancy [Unknown]
  - Maternal exposure during pregnancy [Unknown]

NARRATIVE: CASE EVENT DATE: 20210101
